FAERS Safety Report 4868126-6 (Version None)
Quarter: 2005Q4

REPORT INFORMATION
  Report Type: 
  Country: None (occurrence: None)
  Receive Date: 20051229
  Receipt Date: 20051220
  Transmission Date: 20060501
  Serious: Yes (Disabling)
  Sender: FDA-Public Use
  Company Number: PHBS2005IT18805

PATIENT
  Age: 77 Year
  Sex: Male

DRUGS (10)
  1. ZOMETA [Suspect]
     Indication: METASTASES TO BONE
     Dosage: 4 MG, QMO
     Dates: start: 20030101, end: 20051130
  2. ALKERAN [Concomitant]
  3. DELTACORTENE [Concomitant]
  4. CASODEX [Concomitant]
  5. NOLVADEX [Concomitant]
  6. IDEOS [Concomitant]
  7. EPREX [Concomitant]
  8. AREDIA [Suspect]
     Indication: METASTASES TO BONE
     Dosage: 90 MG, QMO
     Dates: start: 19980101, end: 20030101
  9. TRENTAL [Concomitant]
  10. FOSICOMBI [Concomitant]

REACTIONS (1)
  - OSTEOMYELITIS CHRONIC [None]
